FAERS Safety Report 13786999 (Version 1)
Quarter: 2017Q3

REPORT INFORMATION
  Report Type: Spontaneous
  Country: US (occurrence: US)
  Receive Date: 20170725
  Receipt Date: 20170725
  Transmission Date: 20171127
  Serious: No
  Sender: FDA-Public Use
  Company Number: US-UNITED THERAPEUTICS-UNT-2016-018650

PATIENT
  Sex: Female
  Weight: 23.13 kg

DRUGS (2)
  1. REMODULIN [Suspect]
     Active Substance: TREPROSTINIL
     Indication: PULMONARY ARTERIAL HYPERTENSION
     Dosage: 0.055 ?G/KG, CONTINUING
     Route: 058
     Dates: start: 20161109
  2. REMODULIN [Suspect]
     Active Substance: TREPROSTINIL
     Dosage: 0.064 ?G/KG, CONTINUING
     Route: 058
     Dates: start: 20161202

REACTIONS (6)
  - Hypotension [Not Recovered/Not Resolved]
  - Drug titration error [Unknown]
  - Dizziness [Unknown]
  - Presyncope [Unknown]
  - Vomiting [Unknown]
  - Nausea [Unknown]
